FAERS Safety Report 15147203 (Version 1)
Quarter: 2018Q3

REPORT INFORMATION
  Report Type: Spontaneous
  Country: FR (occurrence: FR)
  Receive Date: 20180716
  Receipt Date: 20180716
  Transmission Date: 20181010
  Serious: Yes (Hospitalization)
  Sender: FDA-Public Use
  Company Number: FR-TEVA-2018-FR-926089

PATIENT
  Age: 69 Year
  Sex: Male
  Weight: 61 kg

DRUGS (13)
  1. SPECIAFOLDINE 0,4 MG, COMPRIM? [Concomitant]
     Active Substance: FOLIC ACID
     Dosage: .8 MILLIGRAM DAILY;
     Route: 048
     Dates: start: 20180305
  2. OXYNORM 10 MG/ML, SOLUTION INJECTABLE [Concomitant]
     Indication: PAIN
     Dosage: 1000 MG/KG DAILY;
     Route: 011
     Dates: start: 20180530
  3. KETAMINE [Concomitant]
     Active Substance: KETAMINE
     Indication: PAIN
     Route: 042
     Dates: start: 20180514
  4. LASILIX RETARD 60 MG, G?LULE [Concomitant]
     Active Substance: FUROSEMIDE
     Dosage: 60 MILLIGRAM DAILY;
     Route: 048
     Dates: start: 20180528
  5. ALIMTA [Suspect]
     Active Substance: PEMETREXED DISODIUM
     Indication: LUNG ADENOCARCINOMA
     Route: 041
     Dates: start: 20180307, end: 20180509
  6. TAHOR [Concomitant]
     Active Substance: ATORVASTATIN CALCIUM
     Dosage: 10 MILLICURIES DAILY;
     Route: 048
  7. PANTOPRAZOLE [Concomitant]
     Active Substance: PANTOPRAZOLE
     Dosage: 40 MILLIGRAM DAILY;
     Route: 048
  8. KARDEGIC [Concomitant]
     Active Substance: ASPIRIN DL-LYSINE
     Dosage: 75 MILLIGRAM DAILY;
     Route: 048
  9. MOVENTIG 12,5 MG, COMPRIM? PELLICUL? [Concomitant]
     Dosage: 12.5 MILLIGRAM DAILY;
     Route: 048
     Dates: start: 20180322
  10. DIAZEPAM. [Concomitant]
     Active Substance: DIAZEPAM
     Dosage: 7.5 MILLIGRAM DAILY;
     Route: 048
     Dates: start: 20180322
  11. METHYLPREDNISOLONE. [Concomitant]
     Active Substance: METHYLPREDNISOLONE
     Indication: PAIN
     Dosage: 40 MILLIGRAM DAILY;
     Route: 042
     Dates: start: 20180531
  12. INNOHEP [Concomitant]
     Active Substance: TINZAPARIN SODIUM
     Indication: VENOUS THROMBOSIS LIMB
     Dosage: 10000 IU (INTERNATIONAL UNIT) DAILY;
     Route: 048
     Dates: start: 20180509
  13. CARBOPLATINE [Suspect]
     Active Substance: CARBOPLATIN
     Indication: LUNG ADENOCARCINOMA
     Route: 041
     Dates: start: 20180307, end: 20180509

REACTIONS (1)
  - Rash erythematous [Not Recovered/Not Resolved]

NARRATIVE: CASE EVENT DATE: 20180520
